FAERS Safety Report 7241534 (Version 3)
Quarter: 2014Q2

REPORT INFORMATION
  Report Type: Spontaneous
  Country: IT (occurrence: None)
  Receive Date: 20091222
  Receipt Date: 20140416
  Transmission Date: 20141212
  Serious: Yes (Hospitalization, Other)
  Sender: FDA-Public Use
  Company Number: AUR-APL-2009-01533

PATIENT
  Age: 88 Year
  Sex: Female

DRUGS (9)
  1. GLUCOPHAGE [Suspect]
     Indication: TYPE 2 DIABETES MELLITUS
     Dosage: 500MG, ORAL
     Route: 048
  2. ENALAPRIL MALEATE [Suspect]
     Indication: CARDIAC FAILURE
     Dosage: 5MG, ORAL
     Route: 048
  3. SOLOSA [Suspect]
     Indication: TYPE 2 DIABETES MELLITUS
     Dosage: 2MG, ORAL
     Route: 048
     Dates: start: 20091026
  4. PREDNISONE (DELTOCORTENE) TABLETS [Concomitant]
  5. THEOPHYLLINE (RESPICUR) [Concomitant]
  6. RABEPRAZOLE SODIUM (PARIET) [Concomitant]
  7. PARIET (RABEPRAZOLE SODIUM) [Concomitant]
  8. DELTACORTENE (PREDNISONE) [Concomitant]
  9. RESPICUR (THEOPHYLLINE) [Concomitant]

REACTIONS (2)
  - Hypoglycaemic coma [None]
  - Blood pressure increased [None]
